FAERS Safety Report 6138512-5 (Version None)
Quarter: 2009Q1

REPORT INFORMATION
  Report Type: 
  Country: None (occurrence: None)
  Receive Date: 20090331
  Receipt Date: 20090318
  Transmission Date: 20090719
  Serious: Yes (Hospitalization)
  Sender: FDA-Public Use
  Company Number: IL-ELI_LILLY_AND_COMPANY-IL200812005823

PATIENT
  Age: 17 Year
  Sex: Female

DRUGS (5)
  1. FORTEO [Suspect]
     Indication: HYPOPARATHYROIDISM
     Dosage: 60 UG, DAILY (1/D)
     Route: 058
  2. FORTEO [Suspect]
     Dosage: 18 UG, DAILY (1/D)
     Route: 065
  3. CALTRATE [Concomitant]
     Dosage: 600 MG, 2/D
     Route: 048
  4. ALPHA D3 [Concomitant]
     Dosage: UNK UNK, DAILY (1/D)
     Route: 048
  5. MAGNESIUM SULFATE [Concomitant]
     Dosage: 300 MG, 2/D
     Route: 048

REACTIONS (3)
  - DRUG INTOLERANCE [None]
  - HYPOPARATHYROIDISM [None]
  - OVERDOSE [None]
